FAERS Safety Report 5786841-7 (Version None)
Quarter: 2008Q2

REPORT INFORMATION
  Report Type: 
  Country: None (occurrence: None)
  Receive Date: 20080620
  Receipt Date: 20080616
  Transmission Date: 20081010
  Serious: Yes (Death)
  Sender: FDA-Public Use
  Company Number: 163-20785-08041019

PATIENT
  Age: 68 Year
  Sex: Female

DRUGS (2)
  1. THALOMID [Suspect]
     Indication: MULTIPLE MYELOMA
     Dosage: 50 MG, QOD, ORAL
     Route: 048
     Dates: start: 20040106, end: 20080301
  2. DECADRON [Concomitant]

REACTIONS (3)
  - CARDIAC ARREST [None]
  - MITRAL VALVE REPLACEMENT [None]
  - POST PROCEDURAL COMPLICATION [None]
